FAERS Safety Report 16114839 (Version 1)
Quarter: 2019Q1

REPORT INFORMATION
  Report Type: Report from Study
  Country: US (occurrence: US)
  Receive Date: 20190325
  Receipt Date: 20190325
  Transmission Date: 20190418
  Serious: Yes (Hospitalization)
  Sender: FDA-Public Use
  Company Number: US-ACTELION-A-NJ2017-161541

PATIENT
  Age: 43 Year
  Sex: Male

DRUGS (9)
  1. SPIRONOLACTONE. [Concomitant]
     Active Substance: SPIRONOLACTONE
  2. LEXAPRO [Concomitant]
     Active Substance: ESCITALOPRAM OXALATE
  3. XIFAXAN [Concomitant]
     Active Substance: RIFAXIMIN
  4. OPSUMIT [Suspect]
     Active Substance: MACITENTAN
     Indication: PULMONARY ARTERIAL HYPERTENSION
     Dosage: 10 MG, QD
     Route: 048
     Dates: start: 20170428
  5. LOSARTAN. [Concomitant]
     Active Substance: LOSARTAN
  6. OMEPRAZOLE. [Concomitant]
     Active Substance: OMEPRAZOLE
  7. CARVEDILOL. [Concomitant]
     Active Substance: CARVEDILOL
  8. LANTUS [Concomitant]
     Active Substance: INSULIN GLARGINE
  9. ESCITALOPRAM [Concomitant]
     Active Substance: ESCITALOPRAM OXALATE

REACTIONS (7)
  - Sleep disorder [Unknown]
  - Memory impairment [Not Recovered/Not Resolved]
  - Dyspnoea [Recovered/Resolved]
  - Insomnia [Unknown]
  - Nasopharyngitis [Unknown]
  - Hospitalisation [Unknown]
  - Product dose omission [Not Recovered/Not Resolved]

NARRATIVE: CASE EVENT DATE: 201709
